FAERS Safety Report 21566346 (Version 1)
Quarter: 2022Q4

REPORT INFORMATION
  Report Type: Spontaneous
  Country: GB (occurrence: GB)
  Receive Date: 20221108
  Receipt Date: 20221108
  Transmission Date: 20230112
  Serious: Yes (Hospitalization, Other)
  Sender: FDA-Public Use
  Company Number: GB-JNJFOC-20210337442

PATIENT
  Age: 48 Year
  Sex: Female
  Weight: 51.4 kg

DRUGS (18)
  1. ONDANSETRON [Suspect]
     Active Substance: ONDANSETRON
     Indication: Nausea
     Dosage: 16 MG, QD
     Route: 048
     Dates: start: 20210220, end: 20210221
  2. ONDANSETRON [Suspect]
     Active Substance: ONDANSETRON
     Indication: Vomiting
  3. DEXAMETHASONE [Suspect]
     Active Substance: DEXAMETHASONE
     Indication: Vomiting
     Dosage: 8 MG, QD
     Route: 048
     Dates: start: 20210220, end: 20210221
  4. DEXAMETHASONE [Suspect]
     Active Substance: DEXAMETHASONE
     Indication: Nausea
  5. ADRIACIN [Suspect]
     Active Substance: DOXORUBICIN HYDROCHLORIDE
     Indication: Ovarian cancer
     Dosage: FIRST 3 CYCLES; CAELYX+5%GLUCOSE
     Route: 065
  6. ADRIACIN [Suspect]
     Active Substance: DOXORUBICIN HYDROCHLORIDE
     Dosage: 4TH CYCLE; DOSAGE STRENGTH 50 MG/25 ML
     Route: 065
     Dates: start: 20210215
  7. ADRIACIN [Suspect]
     Active Substance: DOXORUBICIN HYDROCHLORIDE
     Dosage: 50 MG
     Route: 065
     Dates: start: 20210219, end: 2021
  8. CARBOPLATIN [Suspect]
     Active Substance: CARBOPLATIN
     Indication: Ovarian cancer
     Dosage: 4TH CYCLE
     Route: 065
     Dates: start: 20210215
  9. CARBOPLATIN [Suspect]
     Active Substance: CARBOPLATIN
     Dosage: FIRST 3 CYCLES;CARBOPLATIN+5%GLUCOSE
     Route: 065
  10. CARBOPLATIN [Suspect]
     Active Substance: CARBOPLATIN
     Dosage: 4TH CYCLE, CARBOPLATIN 450 MG + 5% GLUCOSE 545 ML GIVEN OVER 1 HOUR (450 MG)
     Route: 065
     Dates: start: 20210219, end: 2021
  11. DEXTROSE MONOHYDRATE [Suspect]
     Active Substance: DEXTROSE MONOHYDRATE
     Indication: Medication dilution
     Dosage: 4TH CYCLE; CAELYX 50MG + 5%GLUCOSE 250 ML OVER 1 HOUR(250ML)
     Route: 065
     Dates: start: 20210219
  12. DEXTROSE MONOHYDRATE [Suspect]
     Active Substance: DEXTROSE MONOHYDRATE
     Dosage: FIRST 3 CYCLES;CAELYX+5%GLUCOSE
     Route: 065
  13. DEXTROSE MONOHYDRATE [Suspect]
     Active Substance: DEXTROSE MONOHYDRATE
     Dosage: FIRST 3 CYCLES; CARBOPLATIN + 5% GLUCOSE
     Route: 065
  14. DEXTROSE MONOHYDRATE [Suspect]
     Active Substance: DEXTROSE MONOHYDRATE
     Dosage: 4TH CYCLE; CARBOPLATIN 450 MG + 5% GLUCOSE 545 ML OVER 1 HOUR (500 ML)
     Route: 065
     Dates: start: 20210219
  15. METOCLOPRAMIDE [Suspect]
     Active Substance: METOCLOPRAMIDE
     Indication: Nausea
     Dosage: 30 MG, QD
     Route: 048
     Dates: start: 20201113
  16. METOCLOPRAMIDE [Suspect]
     Active Substance: METOCLOPRAMIDE
     Indication: Vomiting
  17. ACETAMINOPHEN [Concomitant]
     Active Substance: ACETAMINOPHEN
     Indication: Pain
     Dosage: 500 MG-1 G UPTO FOUR TIMES A DAY, AS REQUIRED; NOT KNOWN-LONG TERM (4 IN 1 D)
     Route: 048
  18. ACETAMINOPHEN [Concomitant]
     Active Substance: ACETAMINOPHEN
     Dosage: 50 MG, 4X/DAY (UP TO 1 G)
     Route: 048

REACTIONS (6)
  - Myelosuppression [Unknown]
  - Pancytopenia [Recovering/Resolving]
  - Neutropenic sepsis [Recovering/Resolving]
  - Mouth ulceration [Unknown]
  - Folate deficiency [Unknown]
  - Vitamin B12 deficiency [Unknown]

NARRATIVE: CASE EVENT DATE: 20210301
